FAERS Safety Report 24256223 (Version 1)
Quarter: 2024Q3

REPORT INFORMATION
  Report Type: Spontaneous
  Country: US (occurrence: US)
  Receive Date: 20240827
  Receipt Date: 20240827
  Transmission Date: 20241017
  Serious: Yes (Other)
  Sender: GLENMARK
  Company Number: US-MLMSERVICE-20240807-PI154303-00139-1

PATIENT

DRUGS (3)
  1. NORGESTIMATE AND ETHINYL ESTRADIOL [Suspect]
     Active Substance: ETHINYL ESTRADIOL\NORGESTIMATE
     Indication: Oral contraception
     Dosage: UNK (NORGESTIMATE-ETHINYL ESTRADIOL (0.18/0.215/0.25 MG - 35 MCG))
     Route: 048
  2. DEXAMETHASONE [Suspect]
     Active Substance: DEXAMETHASONE
     Indication: Product used for unknown indication
     Dosage: 1 MILLIGRAM
     Route: 065
  3. DILTIAZEM [Concomitant]
     Active Substance: DILTIAZEM
     Indication: Product used for unknown indication
     Dosage: 120 MILLIGRAM, OD
     Route: 065

REACTIONS (2)
  - Hyperadrenocorticism [Recovering/Resolving]
  - Anxiety [Recovered/Resolved]
